FAERS Safety Report 23727244 (Version 1)
Quarter: 2024Q2

REPORT INFORMATION
  Report Type: Spontaneous
  Country: GB (occurrence: GB)
  Receive Date: 20240410
  Receipt Date: 20240410
  Transmission Date: 20240716
  Serious: Yes (Other)
  Sender: FDA-Public Use
  Company Number: None

PATIENT

DRUGS (1)
  1. XCOPRI [Suspect]
     Active Substance: CENOBAMATE
     Indication: Epilepsy
     Dosage: 100 MG ONCE DAILY AT NIGHT
     Route: 048
     Dates: start: 20240130

REACTIONS (4)
  - Apathy [Not Recovered/Not Resolved]
  - Weight increased [Not Recovered/Not Resolved]
  - Sedation complication [Recovering/Resolving]
  - Memory impairment [Not Recovered/Not Resolved]
